FAERS Safety Report 7676319-8 (Version None)
Quarter: 2011Q3

REPORT INFORMATION
  Report Type: 
  Country: None (occurrence: None)
  Receive Date: 20110811
  Receipt Date: 20110808
  Transmission Date: 20111222
  Serious: No
  Sender: FDA-Public Use
  Company Number: US-PFIZER INC-2011181255

PATIENT
  Sex: Female

DRUGS (5)
  1. ZITHROMAX [Suspect]
     Dosage: UNK
     Dates: start: 20110101
  2. ALLEGRA [Suspect]
     Indication: SWELLING
     Dosage: 60 MG, UNK
     Route: 048
     Dates: start: 20110601
  3. NASONEX [Suspect]
     Dosage: UNK
  4. SUDAFED 12 HOUR [Suspect]
     Dosage: UNK
     Dates: start: 20110727
  5. ALLEGRA [Suspect]
     Indication: HYPERSENSITIVITY

REACTIONS (2)
  - FATIGUE [None]
  - SOMNOLENCE [None]
